FAERS Safety Report 4528236-X (Version None)
Quarter: 2004Q4

REPORT INFORMATION
  Report Type: 
  Country: None (occurrence: None)
  Receive Date: 20041130
  Receipt Date: 20040825
  Transmission Date: 20050328
  Serious: No
  Sender: FDA-Public Use
  Company Number: 702159

PATIENT

DRUGS (2)
  1. AMEVIVE [Suspect]
     Indication: PSORIASIS
  2. ENBREL [Concomitant]

REACTIONS (1)
  - PARAESTHESIA [None]
